FAERS Safety Report 24712872 (Version 1)
Quarter: 2024Q4

REPORT INFORMATION
  Report Type: Spontaneous
  Country: US (occurrence: None)
  Receive Date: 20241208
  Receipt Date: 20241208
  Transmission Date: 20250115
  Serious: No
  Sender: Public
  Company Number: None

PATIENT
  Age: 46 Year
  Sex: Female
  Weight: 40.5 kg

DRUGS (13)
  1. DOXYCYCLINE [Suspect]
     Active Substance: DOXYCYCLINE
     Indication: Bartonellosis
     Dosage: FREQUENCY : EVERY 12 HOURS;?
     Route: 048
     Dates: start: 20241204, end: 20241208
  2. NALTREXONE [Concomitant]
     Active Substance: NALTREXONE
  3. ACIPHEX [Concomitant]
     Active Substance: RABEPRAZOLE SODIUM
  4. Carafete [Concomitant]
  5. RECLAST [Concomitant]
     Active Substance: ZOLEDRONIC ACID
  6. VITAMINS [Concomitant]
     Active Substance: VITAMINS
  7. CALCIUM\VITAMIN D [Concomitant]
     Active Substance: CALCIUM\VITAMIN D
  8. MAGNESIUM [Concomitant]
     Active Substance: MAGNESIUM
  9. COENZYME Q10 [Concomitant]
     Active Substance: DIETARY SUPPLEMENT\UBIDECARENONE
  10. HERBALS\TURMERIC [Concomitant]
     Active Substance: HERBALS\TURMERIC
  11. UNSPECIFIED INGREDIENT [Concomitant]
     Active Substance: UNSPECIFIED INGREDIENT
  12. PROBIOTICS NOS [Concomitant]
     Active Substance: PROBIOTICS NOS
  13. I-theanine [Concomitant]

REACTIONS (4)
  - Nausea [None]
  - Anxiety [None]
  - Tremor [None]
  - Therapy cessation [None]

NARRATIVE: CASE EVENT DATE: 20241208
